FAERS Safety Report 21334072 (Version 1)
Quarter: 2022Q3

REPORT INFORMATION
  Report Type: Spontaneous
  Country: US (occurrence: None)
  Receive Date: 20220913
  Receipt Date: 20220913
  Transmission Date: 20221027
  Serious: Yes (Hospitalization)
  Sender: FDA-Public Use
  Company Number: None

PATIENT
  Sex: Female

DRUGS (2)
  1. TOBRAMYCIN [Suspect]
     Active Substance: TOBRAMYCIN
  2. DEKAS PLUS SOFTGEL [Concomitant]

REACTIONS (3)
  - Abdominal pain upper [None]
  - Vomiting [None]
  - Therapy interrupted [None]
